FAERS Safety Report 11092800 (Version 1)
Quarter: 2015Q2

REPORT INFORMATION
  Report Type: Spontaneous
  Country: DK (occurrence: DK)
  Receive Date: 20150506
  Receipt Date: 20150506
  Transmission Date: 20150821
  Serious: Yes (Other)
  Sender: FDA-Public Use
  Company Number: DK-JNJFOC-20150418819

PATIENT

DRUGS (1)
  1. METHYLPHENIDATE HYDROCHLORIDE. [Suspect]
     Active Substance: METHYLPHENIDATE HYDROCHLORIDE
     Indication: ATTENTION DEFICIT/HYPERACTIVITY DISORDER
     Route: 065

REACTIONS (9)
  - Urinary retention [Unknown]
  - Oral disorder [Unknown]
  - Cutaneous symptom [Unknown]
  - Nervous system disorder [Unknown]
  - Eye disorder [Unknown]
  - Gastrointestinal disorder [Unknown]
  - Intentional product misuse [Unknown]
  - Cardiovascular disorder [Unknown]
  - Respiratory symptom [Unknown]
